FAERS Safety Report 21400699 (Version 14)
Quarter: 2024Q4

REPORT INFORMATION
  Report Type: Report from Study
  Country: JP (occurrence: JP)
  Receive Date: 20221003
  Receipt Date: 20241127
  Transmission Date: 20250115
  Serious: Yes (Other)
  Sender: ASTELLAS
  Company Number: JP-ASTELLAS-2022JP009049

PATIENT
  Age: 75 Year
  Sex: Male
  Weight: 52 kg

DRUGS (13)
  1. PADCEV [Suspect]
     Active Substance: ENFORTUMAB VEDOTIN\ENFORTUMAB VEDOTIN-EJFV
     Indication: Metastatic carcinoma of the bladder
     Dosage: 1.25 MG/KG, 3 CONSECUTIVE DOSES, THEN SKIPPED ONE DOSE
     Route: 042
     Dates: start: 20220118, end: 20220301
  2. PADCEV [Suspect]
     Active Substance: ENFORTUMAB VEDOTIN\ENFORTUMAB VEDOTIN-EJFV
     Dosage: 1.0 MG/KG, 3 CONSECUTIVE DOSES, THEN SKIPPED ONE DOSE
     Route: 042
     Dates: start: 20220315, end: 20220329
  3. MIRCERA [Concomitant]
     Active Substance: METHOXY POLYETHYLENE GLYCOL-EPOETIN BETA
     Indication: Anaemia
     Route: 058
     Dates: start: 20220112, end: 20220209
  4. VADADUSTAT [Concomitant]
     Active Substance: VADADUSTAT
     Indication: Anaemia
     Route: 048
     Dates: start: 20220302
  5. CANDESARTAN [Concomitant]
     Active Substance: CANDESARTAN
     Indication: Hypertension
     Route: 048
  6. TRICHLORMETHIAZIDE [Concomitant]
     Active Substance: TRICHLORMETHIAZIDE
     Indication: Hypertension
     Route: 048
  7. SOLU-CORTEF [Concomitant]
     Active Substance: HYDROCORTISONE SODIUM SUCCINATE
     Indication: Face oedema
     Route: 042
     Dates: start: 20220331
  8. PREDONINE [Concomitant]
     Active Substance: PREDNISOLONE
     Indication: Drug eruption
     Route: 048
     Dates: start: 20220402, end: 20220407
  9. PREDONINE [Concomitant]
     Active Substance: PREDNISOLONE
     Indication: Face oedema
     Route: 048
     Dates: start: 20220408, end: 20220412
  10. PREDONINE [Concomitant]
     Active Substance: PREDNISOLONE
     Route: 048
     Dates: start: 20220412, end: 20220417
  11. PREDONINE [Concomitant]
     Active Substance: PREDNISOLONE
     Route: 048
     Dates: start: 20220418, end: 20220422
  12. PREDONINE [Concomitant]
     Active Substance: PREDNISOLONE
     Route: 048
     Dates: start: 20220423, end: 20220502
  13. RINDERON V [Concomitant]
     Active Substance: BETAMETHASONE VALERATE
     Indication: Drug eruption
     Dosage: APPLY APPROPRIATE DOSE, TWICE DAILY
     Route: 050
     Dates: start: 20220402

REACTIONS (9)
  - Face oedema [Recovered/Resolved]
  - Drug eruption [Recovering/Resolving]
  - Drug eruption [Recovered/Resolved]
  - Rash maculo-papular [Not Recovered/Not Resolved]
  - Anaemia [Recovering/Resolving]
  - Taste disorder [Not Recovered/Not Resolved]
  - Rash [Unknown]
  - Pruritus [Recovered/Resolved]
  - Eczema [Unknown]

NARRATIVE: CASE EVENT DATE: 20220101
